FAERS Safety Report 9307857 (Version 1)
Quarter: 2013Q2

REPORT INFORMATION
  Report Type: Spontaneous
  Country: US (occurrence: PR)
  Receive Date: 20130524
  Receipt Date: 20130524
  Transmission Date: 20140414
  Serious: Yes (Other)
  Sender: FDA-Public Use
  Company Number: PR-BRISTOL-MYERS SQUIBB COMPANY-18921700

PATIENT
  Age: 62 Year
  Sex: Female

DRUGS (3)
  1. ELIQUIS [Suspect]
     Indication: ATRIAL FIBRILLATION
     Route: 048
     Dates: start: 20130517
  2. CARDURA [Concomitant]
  3. ATENOLOL [Concomitant]

REACTIONS (2)
  - Chest pain [Unknown]
  - Pain in extremity [Unknown]
